FAERS Safety Report 14497056 (Version 1)
Quarter: 2018Q1

REPORT INFORMATION
  Report Type: Other
  Country: DE (occurrence: DE)
  Receive Date: 20180207
  Receipt Date: 20180207
  Transmission Date: 20180509
  Serious: Yes (Death)
  Sender: FDA-Public Use
  Company Number: DE-GLENMARK PHARMACEUTICALS-2017GMK031046

PATIENT

DRUGS (2)
  1. LAMOTRIGINE. [Suspect]
     Active Substance: LAMOTRIGINE
     Dosage: 300/200 MG IN CHANGE EVERY DAY
     Route: 048
     Dates: start: 201704, end: 20170621
  2. LAMOTRIGINE. [Suspect]
     Active Substance: LAMOTRIGINE
     Indication: GENERALISED TONIC-CLONIC SEIZURE
     Dosage: 100/200 MG IN CHANGE EVERY DAY
     Route: 048
     Dates: start: 2008, end: 201704

REACTIONS (1)
  - Death [Fatal]

NARRATIVE: CASE EVENT DATE: 20170621
